FAERS Safety Report 5897489-8 (Version None)
Quarter: 2008Q3

REPORT INFORMATION
  Report Type: 
  Country: None (occurrence: None)
  Receive Date: 20080924
  Receipt Date: 20080924
  Transmission Date: 20090109
  Serious: No
  Sender: FDA-Public Use
  Company Number: None

PATIENT
  Age: 23 Year
  Sex: Female

DRUGS (2)
  1. QUASENSE [Suspect]
     Dates: start: 20071229, end: 20080205
  2. BACTRIM [Concomitant]

REACTIONS (5)
  - ACCIDENTAL EXPOSURE [None]
  - CHOLELITHIASIS [None]
  - HEPATOTOXICITY [None]
  - LIVER INJURY [None]
  - URINARY TRACT INFECTION [None]
